FAERS Safety Report 21425882 (Version 2)
Quarter: 2022Q4

REPORT INFORMATION
  Report Type: Spontaneous
  Country: JP (occurrence: JP)
  Receive Date: 20221008
  Receipt Date: 20221020
  Transmission Date: 20230113
  Serious: Yes (Hospitalization, Other)
  Sender: FDA-Public Use
  Company Number: JP-ABBVIE-22K-087-4306753-00

PATIENT
  Age: 40 Year
  Sex: Female

DRUGS (1)
  1. HUMIRA [Suspect]
     Active Substance: ADALIMUMAB
     Indication: Crohn^s disease
     Route: 058
     Dates: start: 20180702, end: 20220301

REACTIONS (9)
  - Caesarean section [Unknown]
  - Maternal exposure during pregnancy [Unknown]
  - Rubella [Unknown]
  - Urine output decreased [Unknown]
  - Renal impairment [Unknown]
  - Gestational hypertension [Unknown]
  - Antiphospholipid syndrome [Unknown]
  - Live birth [Unknown]
  - Hypertensive nephropathy [Unknown]

NARRATIVE: CASE EVENT DATE: 20220801
